FAERS Safety Report 8366113-7 (Version None)
Quarter: 2012Q2

REPORT INFORMATION
  Report Type: 
  Country: None (occurrence: None)
  Receive Date: 20120516
  Receipt Date: 20120516
  Transmission Date: 20120825
  Serious: Yes (Hospitalization)
  Sender: FDA-Public Use
  Company Number: None

PATIENT
  Sex: Male
  Weight: 68.0396 kg

DRUGS (1)
  1. CYMBALTA [Suspect]

REACTIONS (10)
  - FATIGUE [None]
  - BALANCE DISORDER [None]
  - CHROMATURIA [None]
  - CONSTIPATION [None]
  - INFLUENZA [None]
  - FEAR OF FALLING [None]
  - BLOOD SODIUM INCREASED [None]
  - MEMORY IMPAIRMENT [None]
  - DECREASED APPETITE [None]
  - HEADACHE [None]
